FAERS Safety Report 9830101 (Version 8)
Quarter: 2017Q1

REPORT INFORMATION
  Report Type: Spontaneous
  Country: US (occurrence: US)
  Receive Date: 20140120
  Receipt Date: 20170310
  Transmission Date: 20170429
  Serious: Yes (Hospitalization, Other)
  Sender: FDA-Public Use
  Company Number: US-BAYER-2014-009528

PATIENT
  Age: 32 Year
  Sex: Male
  Weight: 74.83 kg

DRUGS (28)
  1. CIPRO [Suspect]
     Active Substance: CIPROFLOXACIN HYDROCHLORIDE
     Indication: DIVERTICULITIS
     Dosage: UNK
     Route: 048
     Dates: start: 20120503, end: 20120513
  2. FLAGYL [Concomitant]
     Active Substance: METRONIDAZOLE\METRONIDAZOLE HYDROCHLORIDE
     Indication: DIVERTICULITIS
     Dosage: UNK
  3. OMEPRAZOLE. [Concomitant]
     Active Substance: OMEPRAZOLE
     Dosage: UNK
  4. SENOKOT [Concomitant]
     Active Substance: SENNOSIDES
     Indication: LAXATIVE SUPPORTIVE CARE
     Dosage: UNK
  5. MIRALAX [Concomitant]
     Active Substance: POLYETHYLENE GLYCOL 3350
     Indication: LAXATIVE SUPPORTIVE CARE
     Dosage: UNK
  6. TRAMADOL. [Concomitant]
     Active Substance: TRAMADOL
     Indication: PAIN
     Dosage: UNK
     Dates: start: 20120925, end: 20121005
  7. ACETAMINOPHEN. [Concomitant]
     Active Substance: ACETAMINOPHEN
     Dosage: UNK
  8. HYDROCODONE W/ACETAMINOPHEN [Concomitant]
     Active Substance: ACETAMINOPHEN\HYDROCODONE BITARTRATE
     Indication: PAIN
     Dosage: UNK
     Dates: start: 20120427
  9. BACTRIM [Concomitant]
     Active Substance: SULFAMETHOXAZOLE\TRIMETHOPRIM
     Indication: ABDOMINAL INFECTION
     Dosage: UNK
     Dates: start: 2014
  10. PROMETHAZINE [Concomitant]
     Active Substance: PROMETHAZINE\PROMETHAZINE HYDROCHLORIDE
     Indication: NAUSEA
     Dosage: UNK
     Dates: start: 2012
  11. AMANTADINE [Concomitant]
     Active Substance: AMANTADINE
     Dosage: 3 G, QD
  12. METRONIDAZOLE. [Concomitant]
     Active Substance: METRONIDAZOLE
     Dosage: UNK
  13. CIPRO [Suspect]
     Active Substance: CIPROFLOXACIN HYDROCHLORIDE
     Indication: DIVERTICULITIS
     Dosage: UNK
  14. ONDANSETRON [Concomitant]
     Active Substance: ONDANSETRON
  15. NORTRIPTYLINE HCL [Suspect]
     Active Substance: NORTRIPTYLINE HYDROCHLORIDE
     Dosage: UNK
     Dates: start: 20121012
  16. CIPRO [Suspect]
     Active Substance: CIPROFLOXACIN HYDROCHLORIDE
     Indication: DIVERTICULITIS
     Dosage: 500 MG, UNK
     Route: 048
     Dates: start: 20120427, end: 20120503
  17. ALPRAZOLAM. [Concomitant]
     Active Substance: ALPRAZOLAM
     Indication: ANXIETY
     Dosage: UNK
     Dates: start: 2012
  18. NORTRIPTYLINE HCL [Suspect]
     Active Substance: NORTRIPTYLINE HYDROCHLORIDE
     Dosage: UNK
     Dates: start: 20120703
  19. CIPRODEX [Concomitant]
     Active Substance: CIPROFLOXACIN HYDROCHLORIDE\DEXAMETHASONE
     Dosage: UNK
     Dates: start: 20120328, end: 20120411
  20. BACTRIM [Concomitant]
     Active Substance: SULFAMETHOXAZOLE\TRIMETHOPRIM
     Indication: ABDOMINAL INFECTION
     Dosage: UNK
     Dates: start: 2012
  21. SENNA [Concomitant]
     Active Substance: SENNA LEAF\SENNOSIDES\SENNOSIDES A AND B
     Dosage: DAILY 8.6 MG
  22. CIPRO [Suspect]
     Active Substance: CIPROFLOXACIN HYDROCHLORIDE
     Indication: DIVERTICULITIS
     Dosage: DAILY DOSE 400 MG
     Route: 042
     Dates: start: 20120427
  23. FLAGYL [Concomitant]
     Active Substance: METRONIDAZOLE\METRONIDAZOLE HYDROCHLORIDE
     Indication: DIVERTICULITIS
     Dosage: UNK
     Dates: start: 20120427
  24. VENLAFAXINE [Concomitant]
     Active Substance: VENLAFAXINE HYDROCHLORIDE
     Indication: PAIN
     Dosage: UNK
     Dates: start: 20121011, end: 20121021
  25. MORPHINE SULFATE. [Concomitant]
     Active Substance: MORPHINE SULFATE
     Indication: PAIN
     Dosage: UNK
     Dates: start: 20121014
  26. FOLIC ACID. [Suspect]
     Active Substance: FOLIC ACID
     Indication: SUPPLEMENTATION THERAPY
     Dosage: UNK
  27. CLONAZEPAM. [Concomitant]
     Active Substance: CLONAZEPAM
     Indication: TREMOR
     Dosage: UNK
     Dates: start: 20120821
  28. GABAPENTIN. [Concomitant]
     Active Substance: GABAPENTIN
     Indication: NEUROPATHY PERIPHERAL
     Dosage: UNK

REACTIONS (29)
  - Visual impairment [None]
  - Nausea [None]
  - Exercise tolerance decreased [None]
  - Dysstasia [None]
  - Dysphagia [Not Recovered/Not Resolved]
  - Emotional disorder [None]
  - Muscle spasms [None]
  - Balance disorder [None]
  - Amnesia [Recovering/Resolving]
  - Hypotonic urinary bladder [None]
  - Arthralgia [None]
  - Depression [None]
  - Xanthoma [None]
  - Aphthous ulcer [None]
  - Adjustment disorder with depressed mood [None]
  - Dysphemia [None]
  - Decreased appetite [None]
  - Nervousness [None]
  - Muscular weakness [None]
  - Pain in extremity [None]
  - Neuropathy peripheral [None]
  - Injury [None]
  - Constipation [None]
  - Weight decreased [None]
  - Mobility decreased [None]
  - Muscle twitching [None]
  - Urinary incontinence [None]
  - Anxiety [None]
  - Vomiting [None]

NARRATIVE: CASE EVENT DATE: 2012
